FAERS Safety Report 19354823 (Version 5)
Quarter: 2022Q1

REPORT INFORMATION
  Report Type: Spontaneous
  Country: TR (occurrence: TR)
  Receive Date: 20210531
  Receipt Date: 20220223
  Transmission Date: 20220424
  Serious: Yes (Other)
  Sender: FDA-Public Use
  Company Number: TR-NOVARTISPH-NVSC2021TR119382

PATIENT
  Age: 67 Year
  Sex: Female

DRUGS (3)
  1. TRAVATAN [Suspect]
     Active Substance: TRAVOPROST
     Indication: Glaucoma
     Dosage: QD (1X1 BOTH OF EYES), STARTED 10 YEAR AGO
     Route: 065
  2. AZARGA [Suspect]
     Active Substance: BRINZOLAMIDE\TIMOLOL MALEATE
     Indication: Glaucoma
     Dosage: BID (2X1 BOTH OF EYES)
     Route: 065
  3. AZARGA [Suspect]
     Active Substance: BRINZOLAMIDE\TIMOLOL MALEATE
     Dosage: 1X1 (BOTH OF EYES) (10 YEARS AGO)
     Route: 065

REACTIONS (14)
  - Inflammation of lacrimal passage [Unknown]
  - Lacrimation decreased [Unknown]
  - Ocular neoplasm [Unknown]
  - Optic nerve injury [Unknown]
  - Visual impairment [Unknown]
  - Infection [Unknown]
  - Eye infection [Unknown]
  - Eyelid margin crusting [Unknown]
  - Intraocular pressure increased [Unknown]
  - Eye pain [Unknown]
  - Headache [Unknown]
  - Drug ineffective [Unknown]
  - Ocular hyperaemia [Unknown]
  - Product supply issue [Unknown]
